FAERS Safety Report 7008985-4 (Version None)
Quarter: 2010Q3

REPORT INFORMATION
  Report Type: 
  Country: None (occurrence: None)
  Receive Date: 20100923
  Receipt Date: 20100913
  Transmission Date: 20110219
  Serious: Yes (Other)
  Sender: FDA-Public Use
  Company Number: US-BAYER-201034071NA

PATIENT
  Sex: Female

DRUGS (1)
  1. MIRENA [Suspect]
     Indication: PRODUCT USED FOR UNKNOWN INDICATION
     Route: 015

REACTIONS (13)
  - ABDOMINAL PAIN [None]
  - ALOPECIA [None]
  - BACK PAIN [None]
  - CHEST PAIN [None]
  - DECREASED INTEREST [None]
  - FATIGUE [None]
  - HYPOAESTHESIA [None]
  - MOOD SWINGS [None]
  - MYALGIA [None]
  - PHARYNGEAL OEDEMA [None]
  - SINUS DISORDER [None]
  - SWOLLEN TONGUE [None]
  - VERTIGO [None]
